FAERS Safety Report 8777854 (Version 3)
Quarter: 2013Q4

REPORT INFORMATION
  Report Type: Spontaneous
  Country: DK (occurrence: DK)
  Receive Date: 20120912
  Receipt Date: 20131121
  Transmission Date: 20140711
  Serious: Yes (Life-Threatening, Hospitalization)
  Sender: FDA-Public Use
  Company Number: PHHY2012DK078256

PATIENT
  Age: 75 Year
  Sex: Male
  Weight: 120 kg

DRUGS (3)
  1. TRILEPTAL [Suspect]
     Indication: TRIGEMINAL NEURALGIA
     Dosage: 150 MG, UNK
     Route: 048
  2. TRILEPTAL [Suspect]
     Dosage: 600 MG, BID
     Route: 048
     Dates: start: 20120724, end: 20120820
  3. TRILEPTAL [Suspect]
     Dosage: STYRKE: 150 MG
     Route: 048

REACTIONS (3)
  - Atrioventricular block complete [Unknown]
  - Fatigue [Unknown]
  - Syncope [Unknown]
